FAERS Safety Report 5282258-2 (Version None)
Quarter: 2007Q1

REPORT INFORMATION
  Report Type: 
  Country: None (occurrence: None)
  Receive Date: 20070330
  Receipt Date: 20070321
  Transmission Date: 20070707
  Serious: Yes (Other)
  Sender: FDA-Public Use
  Company Number: BR-PFIZER INC-2007022912

PATIENT
  Sex: Male

DRUGS (5)
  1. FRONTAL [Suspect]
     Indication: INSOMNIA
     Route: 048
  2. SOMALGIN [Concomitant]
     Route: 048
  3. PANTOPRAZOLE SODIUM [Concomitant]
     Route: 065
  4. ANCORON [Concomitant]
     Route: 065
  5. PLAVIX [Concomitant]
     Route: 048

REACTIONS (2)
  - CEREBRAL ISCHAEMIA [None]
  - DRUG INEFFECTIVE [None]
